FAERS Safety Report 8917592 (Version 2)
Quarter: 2012Q4

REPORT INFORMATION
  Report Type: 
  Country: FR (occurrence: FR)
  Receive Date: 20121120
  Receipt Date: 20121129
  Transmission Date: 20130627
  Serious: Yes (Other)
  Sender: FDA-Public Use
  Company Number: FR-JNJFOC-20121005863

PATIENT
  Age: 26 Year
  Sex: Male
  Weight: 66 kg

DRUGS (2)
  1. REMICADE [Suspect]
     Indication: CROHN^S DISEASE
     Dosage: 5th infusion
     Route: 042
     Dates: start: 20120828
  2. REMICADE [Suspect]
     Indication: CROHN^S DISEASE
     Dosage: equivalent to 400mg
     Route: 042
     Dates: start: 20110607

REACTIONS (3)
  - Dermatitis bullous [Recovered/Resolved]
  - Impetigo [Recovered/Resolved]
  - Pruritus [Recovered/Resolved]
